FAERS Safety Report 12972494 (Version 1)
Quarter: 2016Q4

REPORT INFORMATION
  Report Type: Report from Study
  Country: KR (occurrence: KR)
  Receive Date: 20161124
  Receipt Date: 20161124
  Transmission Date: 20170207
  Serious: No
  Sender: FDA-Public Use
  Company Number: KR-PROSTRAKAN-2016-KR-0276

PATIENT

DRUGS (12)
  1. VASTINAN MR [Concomitant]
     Indication: MYOCARDIAL INFARCTION
     Dosage: UNKNOWN
     Route: 065
     Dates: start: 20120629
  2. ETOPOSIDE. [Concomitant]
     Active Substance: ETOPOSIDE
     Indication: PRODUCT USED FOR UNKNOWN INDICATION
     Dosage: UNKNOWN
     Route: 065
     Dates: start: 20120717, end: 20120719
  3. CONCOR [Concomitant]
     Active Substance: BISOPROLOL FUMARATE
     Indication: MYOCARDIAL INFARCTION
     Dosage: UNKNOWN
     Route: 065
     Dates: start: 20120712
  4. SPIRONOLACTONE. [Concomitant]
     Active Substance: SPIRONOLACTONE
     Indication: MYOCARDIAL INFARCTION
     Dosage: UNKNOWN
     Route: 065
     Dates: start: 20120629, end: 20120805
  5. ASPIRIN PROTECT [Concomitant]
     Active Substance: ASPIRIN
     Indication: MYOCARDIAL INFARCTION
     Dosage: UNKNOWN
     Route: 065
     Dates: start: 20120712
  6. CISPLATIN. [Concomitant]
     Active Substance: CISPLATIN
     Indication: PRODUCT USED FOR UNKNOWN INDICATION
     Dosage: UNKNOWN
     Route: 065
     Dates: start: 20120717, end: 20120717
  7. GASTREX [Concomitant]
     Indication: GASTRITIS
     Dosage: UNKNOWN
     Route: 065
     Dates: start: 20120706
  8. MEGACE [Concomitant]
     Active Substance: MEGESTROL ACETATE
     Indication: DECREASED APPETITE
     Dosage: UNKNOWN
     Route: 065
     Dates: start: 20120712
  9. GRANISETRON [Suspect]
     Active Substance: GRANISETRON
     Indication: PROPHYLAXIS OF NAUSEA AND VOMITING
     Dosage: UNKNOWN
     Route: 062
     Dates: start: 20120716, end: 20120720
  10. NITROGLYCERIN. [Concomitant]
     Active Substance: NITROGLYCERIN
     Indication: MYOCARDIAL INFARCTION
     Dosage: UNKNOWN
     Route: 065
     Dates: start: 20120718, end: 20120718
  11. LEVOFEXIN [Concomitant]
     Active Substance: LEVOFLOXACIN
     Indication: PNEUMONIA
     Dosage: UNKNOWN
     Route: 065
     Dates: start: 20120714, end: 20120716
  12. SIGMART [Concomitant]
     Active Substance: NICORANDIL
     Indication: MYOCARDIAL INFARCTION
     Dosage: UNKNOWN
     Route: 065
     Dates: start: 20120712

REACTIONS (3)
  - Peptic ulcer [Recovered/Resolved]
  - Nausea [Recovered/Resolved]
  - Pruritus [Recovered/Resolved]

NARRATIVE: CASE EVENT DATE: 20120717
